FAERS Safety Report 15902987 (Version 1)
Quarter: 2019Q1

REPORT INFORMATION
  Report Type: Spontaneous
  Country: US (occurrence: US)
  Receive Date: 20190202
  Receipt Date: 20190202
  Transmission Date: 20190417
  Serious: No
  Sender: FDA-Public Use
  Company Number: US-UNITED THERAPEUTICS-UNT-2018-018614

PATIENT
  Sex: Female

DRUGS (2)
  1. REMODULIN [Suspect]
     Active Substance: TREPROSTINIL
     Indication: PULMONARY ARTERIAL HYPERTENSION
     Dosage: 0.0762 ?G/KG , CONTINUING
     Route: 041
     Dates: start: 20170218
  2. REMODULIN [Suspect]
     Active Substance: TREPROSTINIL
     Dosage: 0.0807 ?G/KG, CONTINUING
     Route: 041

REACTIONS (2)
  - Dyspnoea [Unknown]
  - Headache [Unknown]
